FAERS Safety Report 6456778-9 (Version None)
Quarter: 2009Q4

REPORT INFORMATION
  Report Type: 
  Country: None (occurrence: None)
  Receive Date: 20091124
  Receipt Date: 20091124
  Transmission Date: 20100525
  Serious: No
  Sender: FDA-Public Use
  Company Number: None

PATIENT
  Age: 89 Year
  Sex: Male

DRUGS (2)
  1. ACTIVASE [Suspect]
  2. LABETALOL HCL [Suspect]

REACTIONS (5)
  - BRADYCARDIA [None]
  - DROOLING [None]
  - HYPOTENSION [None]
  - SNORING [None]
  - UNRESPONSIVE TO STIMULI [None]
